FAERS Safety Report 8326929-X (Version None)
Quarter: 2012Q2

REPORT INFORMATION
  Report Type: 
  Country: None (occurrence: None)
  Receive Date: 20120501
  Receipt Date: 20120425
  Transmission Date: 20120825
  Serious: Yes (Other)
  Sender: FDA-Public Use
  Company Number: US-ELI_LILLY_AND_COMPANY-US201204009604

PATIENT
  Sex: Female

DRUGS (2)
  1. HUMALOG [Suspect]
     Indication: DIABETES MELLITUS
     Dosage: UNK UNK, PRN
     Dates: start: 20110901
  2. LEVEMIR [Concomitant]
     Dosage: UNK

REACTIONS (3)
  - CARDIAC DISORDER [None]
  - NEOPLASM MALIGNANT [None]
  - LUNG DISORDER [None]
